FAERS Safety Report 23439631 (Version 2)
Quarter: 2024Q1

REPORT INFORMATION
  Report Type: Report from Study
  Country: US (occurrence: US)
  Receive Date: 20240124
  Receipt Date: 20240126
  Transmission Date: 20240409
  Serious: No
  Sender: FDA-Public Use
  Company Number: US-BRISTOL-MYERS SQUIBB COMPANY-2024-012637

PATIENT
  Age: 60 Year
  Sex: Female
  Weight: 54.43 kg

DRUGS (2)
  1. ZEPOSIA [Suspect]
     Active Substance: OZANIMOD HYDROCHLORIDE
     Indication: Colitis ulcerative
     Route: 048
     Dates: start: 20240117
  2. PANTOPRAZOLE [Concomitant]
     Active Substance: PANTOPRAZOLE
     Indication: Product used for unknown indication
     Dosage: PRN

REACTIONS (4)
  - Nausea [Unknown]
  - Headache [Unknown]
  - Palpitations [Unknown]
  - Depression [Unknown]

NARRATIVE: CASE EVENT DATE: 20240118
